FAERS Safety Report 7399462-X (Version None)
Quarter: 2011Q2

REPORT INFORMATION
  Report Type: 
  Country: None (occurrence: None)
  Receive Date: 20110407
  Receipt Date: 20110325
  Transmission Date: 20111010
  Serious: Yes (Hospitalization)
  Sender: FDA-Public Use
  Company Number: PHHO2011DE05359

PATIENT
  Sex: Female

DRUGS (3)
  1. SIMULECT [Suspect]
     Indication: RENAL TRANSPLANT
     Dosage: 20 MG, ONCE/SINGLE
     Route: 042
     Dates: start: 20110130, end: 20110130
  2. SIMULECT [Suspect]
     Dosage: 20 MG, ONCE/SINGLE
     Route: 042
     Dates: start: 20110203, end: 20110203
  3. RAD 666 [Suspect]
     Indication: RENAL TRANSPLANT
     Dosage: UNK
     Route: 048

REACTIONS (2)
  - C-REACTIVE PROTEIN INCREASED [None]
  - BLOOD CREATININE INCREASED [None]
